FAERS Safety Report 8337617-8 (Version None)
Quarter: 2012Q2

REPORT INFORMATION
  Report Type: 
  Country: None (occurrence: None)
  Receive Date: 20120504
  Receipt Date: 20120430
  Transmission Date: 20120825
  Serious: Yes (Other)
  Sender: FDA-Public Use
  Company Number: PHHY2012DE037110

PATIENT
  Age: 68 Year
  Sex: Male

DRUGS (4)
  1. ASPIRIN [Concomitant]
  2. METOPROLOL TARTRATE [Concomitant]
     Indication: HYPERTENSION
  3. PERINDOPRIL+INDAPAMIDE [Suspect]
     Indication: HYPERTENSION
  4. PHENPROCOUMON [Suspect]
     Indication: ATRIAL FIBRILLATION

REACTIONS (4)
  - HEPATIC STEATOSIS [None]
  - HEPATIC FIBROSIS [None]
  - HEPATIC NECROSIS [None]
  - LIVER INJURY [None]
